FAERS Safety Report 8826548 (Version 3)
Quarter: 2013Q3

REPORT INFORMATION
  Report Type: Report from Study
  Country: ES (occurrence: ES)
  Receive Date: 20121005
  Receipt Date: 20130903
  Transmission Date: 20140515
  Serious: Yes (Life-Threatening, Hospitalization)
  Sender: FDA-Public Use
  Company Number: PHHO2011ES04667

PATIENT
  Age: 74 Year
  Sex: Female
  Weight: 81 kg

DRUGS (21)
  1. METFORMIN [Suspect]
     Indication: TYPE 2 DIABETES MELLITUS
     Dosage: 1000 MG, BID
     Route: 048
     Dates: start: 20100818, end: 20110320
  2. METFORMIN [Suspect]
     Dosage: 1000 MG, UNK
     Route: 048
     Dates: start: 20110401
  3. METFORMIN [Suspect]
     Dosage: 1275 MG, QD
     Dates: start: 20120928
  4. PLACEBO [Suspect]
     Indication: CARDIOVASCULAR DISORDER
     Route: 048
     Dates: start: 20091116
  5. TRANSDERMAL NITRATE [Concomitant]
     Indication: CARDIAC FAILURE CHRONIC
     Dosage: 15 MG, QD SKIN PATCH
     Dates: start: 20100824, end: 20110311
  6. TRANSDERMAL NITRATE [Concomitant]
     Indication: ANGINA UNSTABLE
     Dosage: 10 MG, QD
     Route: 062
     Dates: start: 20110320, end: 20120929
  7. TORASEMIDE [Concomitant]
     Indication: CARDIAC FAILURE CHRONIC
     Dosage: 5 MG, QD
     Route: 048
     Dates: start: 20050601, end: 20110309
  8. SITAGLIPTIN [Concomitant]
     Indication: DIABETES MELLITUS
     Dosage: 50 MG, BID
     Route: 048
     Dates: start: 20100818, end: 20110320
  9. CANDESARTAN [Concomitant]
     Indication: HYPERTENSION
     Dosage: 16 MG, QD
     Route: 048
     Dates: start: 20040520, end: 20110309
  10. ASPIRIN [Concomitant]
     Indication: MYOCARDIAL ISCHAEMIA
     Dosage: 100 MG, QD
     Route: 048
     Dates: start: 20110311, end: 20110311
  11. ASPIRIN [Concomitant]
     Indication: ACUTE CORONARY SYNDROME
  12. CLOPIDOGREL [Concomitant]
     Indication: MYOCARDIAL ISCHAEMIA
     Dosage: 75 MG, QD
     Route: 048
     Dates: start: 20110311, end: 20120929
  13. CLOPIDOGREL [Concomitant]
     Indication: ACUTE CORONARY SYNDROME
  14. RAMIPRIL [Concomitant]
     Indication: HYPERTENSION
     Dosage: 2.5 MG, QD
     Route: 048
     Dates: start: 20110310, end: 20120929
  15. ATORVASTATIN [Concomitant]
     Indication: DYSLIPIDAEMIA
     Dosage: 80 MG, QD
     Route: 048
     Dates: start: 20110310, end: 20120929
  16. CARVEDILOL [Concomitant]
     Indication: ATRIAL FIBRILLATION
     Dosage: 3.125 MG, QD
     Route: 048
     Dates: start: 20110311, end: 20110317
  17. CARVEDILOL [Concomitant]
     Indication: HYPERTENSION
     Dosage: 3.125 MG, QD
     Route: 048
     Dates: start: 20110318
  18. CARVEDILOL [Concomitant]
     Dosage: 6.25 MG, QD
     Route: 048
     Dates: start: 20110326, end: 20120929
  19. LANSOPRAZOLE [Concomitant]
     Indication: PROPHYLAXIS AGAINST GASTROINTESTINAL ULCER
     Dosage: 30 MG, QD
     Route: 048
     Dates: start: 20110325, end: 20120929
  20. FUROSEMIDE [Concomitant]
     Indication: HYPERTENSION
     Dosage: 20 MG, QD
     Route: 048
     Dates: start: 20120130, end: 20120929
  21. SAXAGLIPTIN [Concomitant]
     Indication: DIABETES MELLITUS
     Dosage: 5 MG, QD
     Route: 048
     Dates: start: 20110326, end: 20120929

REACTIONS (11)
  - Acute coronary syndrome [Recovered/Resolved]
  - Chest pain [Recovered/Resolved]
  - Concomitant disease progression [Recovered/Resolved]
  - Myocardial ischaemia [Recovered/Resolved]
  - Gastroenteritis [Recovered/Resolved]
  - Nausea [Unknown]
  - Diarrhoea [Unknown]
  - Sinus rhythm [Recovered/Resolved]
  - Electrocardiogram ST segment elevation [Recovered/Resolved]
  - Angina unstable [Recovered/Resolved]
  - Hyperhidrosis [Unknown]
